FAERS Safety Report 6400544-7 (Version None)
Quarter: 2009Q4

REPORT INFORMATION
  Report Type: 
  Country: None (occurrence: None)
  Receive Date: 20091013
  Receipt Date: 20091013
  Transmission Date: 20100525
  Serious: Yes (Hospitalization)
  Sender: FDA-Public Use
  Company Number: None

PATIENT
  Age: 65 Year
  Sex: Female
  Weight: 66.7 kg

DRUGS (2)
  1. LISINOPRIL [Suspect]
     Indication: HYPERTENSION
     Dosage: LISINOPRIL 10MG DAILY PO
     Route: 048
     Dates: start: 20090916, end: 20091007
  2. LISINOPRIL [Suspect]
     Dosage: LISINOPRIL 20MG DAILY PO
     Route: 048
     Dates: start: 20090123, end: 20090510

REACTIONS (1)
  - ANGIOEDEMA [None]
